FAERS Safety Report 19710915 (Version 43)
Quarter: 2025Q2

REPORT INFORMATION
  Report Type: Report from Study
  Country: CN (occurrence: CN)
  Receive Date: 20210817
  Receipt Date: 20250408
  Transmission Date: 20250717
  Serious: Yes (Death, Hospitalization, Other)
  Sender: TAKEDA
  Company Number: CN-TAKEDA-2021TUS050534

PATIENT
  Age: 66 Year
  Sex: Male
  Weight: 60 kg

DRUGS (14)
  1. IXAZOMIB [Suspect]
     Active Substance: IXAZOMIB
     Indication: Plasma cell myeloma
     Dosage: 4 MILLIGRAM, 1/WEEK
     Dates: start: 20210519, end: 20210630
  2. DEXAMETHASONE [Suspect]
     Active Substance: DEXAMETHASONE
     Indication: Plasma cell myeloma
  3. POMALIDOMIDE [Suspect]
     Active Substance: POMALIDOMIDE
     Indication: Plasma cell myeloma
  4. OPRELVEKIN [Suspect]
     Active Substance: OPRELVEKIN
     Indication: Plasma cell myeloma
  5. ETOPOSIDE [Suspect]
     Active Substance: ETOPOSIDE
     Indication: Plasma cell myeloma
  6. BENDAMUSTINE [Suspect]
     Active Substance: BENDAMUSTINE
     Indication: Plasma cell myeloma
  7. MOXIFLOXACIN HYDROCHLORIDE [Concomitant]
     Active Substance: MOXIFLOXACIN HYDROCHLORIDE
     Indication: Pneumonia
     Dosage: 0.4 GRAM, QD
     Dates: start: 20210520, end: 20210605
  8. CASPOFUNGIN ACETATE [Concomitant]
     Active Substance: CASPOFUNGIN ACETATE
     Indication: Pneumonia
     Dosage: 50 MILLIGRAM, QD
     Dates: start: 20210528, end: 20210621
  9. ERYTHROPOIETIN [Concomitant]
     Active Substance: ERYTHROPOIETIN
     Indication: Anaemia
     Dosage: UNK, QD
     Dates: start: 20210601, end: 20210630
  10. ERYTHROPOIETIN [Concomitant]
     Active Substance: ERYTHROPOIETIN
     Indication: White blood cell count decreased
  11. Compound glycyrrhizin [Concomitant]
     Indication: Liver disorder
     Dosage: 160 MILLIGRAM, QD
     Dates: start: 20210601, end: 20210630
  12. GANCICLOVIR [Concomitant]
     Active Substance: GANCICLOVIR
     Indication: Pneumonia
     Dates: start: 20210606, end: 20210616
  13. GANCICLOVIR [Concomitant]
     Active Substance: GANCICLOVIR
     Dates: start: 20210713, end: 20210716
  14. Hepatocyte growth promoting factor [Concomitant]
     Indication: Prophylaxis
     Dosage: 120 MICROGRAM, QD
     Dates: start: 20210528, end: 20210614

REACTIONS (29)
  - Cerebral infarction [Fatal]
  - White blood cell count decreased [Not Recovered/Not Resolved]
  - Hypokalaemia [Recovering/Resolving]
  - Hyperkalaemia [Recovering/Resolving]
  - Decreased appetite [Recovering/Resolving]
  - Hypercalcaemia [Recovered/Resolved]
  - Blood creatinine increased [Not Recovered/Not Resolved]
  - Lymphocyte count decreased [Not Recovered/Not Resolved]
  - Hypoproteinaemia [Recovering/Resolving]
  - Off label use [Unknown]
  - Anaemia [Not Recovered/Not Resolved]
  - Neutrophil count decreased [Not Recovered/Not Resolved]
  - Vomiting [Recovering/Resolving]
  - Constipation [Recovered/Resolved]
  - Abdominal pain [Recovering/Resolving]
  - C-reactive protein increased [Recovering/Resolving]
  - Pain in jaw [Not Recovered/Not Resolved]
  - Blood glucose decreased [Recovering/Resolving]
  - Blood lactate dehydrogenase increased [Not Recovered/Not Resolved]
  - Alpha hydroxybutyrate dehydrogenase increased [Not Recovered/Not Resolved]
  - Hyponatraemia [Recovering/Resolving]
  - Blood glucose increased [Recovering/Resolving]
  - Blood bilirubin increased [Not Recovered/Not Resolved]
  - Dizziness [Recovering/Resolving]
  - Aspartate aminotransferase increased [Recovering/Resolving]
  - Back pain [Not Recovered/Not Resolved]
  - Oedema peripheral [Not Recovered/Not Resolved]
  - Upper respiratory tract infection [Recovering/Resolving]
  - Nausea [Recovering/Resolving]

NARRATIVE: CASE EVENT DATE: 20210610
